FAERS Safety Report 18718880 (Version 1)
Quarter: 2021Q1

REPORT INFORMATION
  Report Type: Spontaneous
  Country: US (occurrence: US)
  Receive Date: 20210108
  Receipt Date: 20210108
  Transmission Date: 20210419
  Serious: No
  Sender: FDA-Public Use
  Company Number: US-NOVOPROD-762067

PATIENT
  Age: 55 Year
  Sex: Male

DRUGS (2)
  1. RYBELSUS [Suspect]
     Active Substance: SEMAGLUTIDE
     Indication: PRODUCT USED FOR UNKNOWN INDICATION
     Dosage: 3 MG, QD
     Route: 048
     Dates: start: 20201005, end: 202010
  2. RYBELSUS [Suspect]
     Active Substance: SEMAGLUTIDE
     Dosage: 1.5 MG, QD
     Route: 048
     Dates: start: 202010

REACTIONS (2)
  - Gastrooesophageal reflux disease [Recovering/Resolving]
  - Intentional product use issue [Not Recovered/Not Resolved]

NARRATIVE: CASE EVENT DATE: 202010
